FAERS Safety Report 16415795 (Version 1)
Quarter: 2019Q2

REPORT INFORMATION
  Report Type: Spontaneous
  Country: JP (occurrence: JP)
  Receive Date: 20190611
  Receipt Date: 20190611
  Transmission Date: 20190711
  Serious: Yes (Death)
  Sender: FDA-Public Use
  Company Number: JP-JNJFOC-20181031114

PATIENT
  Age: 78 Year
  Sex: Female
  Weight: 47 kg

DRUGS (10)
  1. XARELTO [Suspect]
     Active Substance: RIVAROXABAN
     Indication: CEREBROVASCULAR ACCIDENT PROPHYLAXIS
     Route: 048
     Dates: start: 20170215, end: 20180816
  2. XARELTO [Suspect]
     Active Substance: RIVAROXABAN
     Indication: THROMBOSIS PROPHYLAXIS
     Route: 048
     Dates: start: 20170215, end: 20180816
  3. BABY ASPIRIN [Suspect]
     Active Substance: ASPIRIN
     Indication: CEREBRAL HAEMORRHAGE
     Route: 048
     Dates: end: 20180816
  4. XARELTO [Suspect]
     Active Substance: RIVAROXABAN
     Indication: ATRIAL FIBRILLATION
     Route: 048
     Dates: start: 20170215, end: 20180816
  5. LASIX [Concomitant]
     Active Substance: FUROSEMIDE
     Indication: CEREBRAL HAEMORRHAGE
     Route: 048
     Dates: start: 20170426, end: 20180816
  6. BABY ASPIRIN [Suspect]
     Active Substance: ASPIRIN
     Indication: CEREBRAL ARTERY OCCLUSION
     Route: 048
     Dates: end: 20180816
  7. LIPITOR [Concomitant]
     Active Substance: ATORVASTATIN CALCIUM
     Indication: CEREBRAL HAEMORRHAGE
     Route: 048
     Dates: end: 20180816
  8. TAKEPRON [Concomitant]
     Active Substance: LANSOPRAZOLE
     Indication: CEREBRAL HAEMORRHAGE
     Route: 048
     Dates: end: 20180816
  9. MAINTATE [Concomitant]
     Active Substance: BISOPROLOL FUMARATE
     Indication: CEREBRAL HAEMORRHAGE
     Route: 048
     Dates: end: 20180816
  10. BABY ASPIRIN [Suspect]
     Active Substance: ASPIRIN
     Indication: CEREBRAL ARTERIOSCLEROSIS
     Route: 048
     Dates: end: 20180816

REACTIONS (5)
  - Cerebral ventricular rupture [Fatal]
  - Performance status decreased [Unknown]
  - Decreased appetite [Unknown]
  - Cerebral haemorrhage [Fatal]
  - Cerebral haematoma [Fatal]

NARRATIVE: CASE EVENT DATE: 20180816
